FAERS Safety Report 17047203 (Version 3)
Quarter: 2023Q1

REPORT INFORMATION
  Report Type: Spontaneous
  Country: US (occurrence: US)
  Receive Date: 20191119
  Receipt Date: 20230307
  Transmission Date: 20230417
  Serious: Yes (Other)
  Sender: FDA-Public Use
  Company Number: US-SA-2019SA319720

PATIENT
  Sex: Female
  Weight: 149.6 kg

DRUGS (36)
  1. DUPIXENT [Suspect]
     Active Substance: DUPILUMAB
     Indication: Asthma
     Dosage: 300 MG, QOW
     Route: 058
  2. DUPIXENT [Suspect]
     Active Substance: DUPILUMAB
     Indication: Immunoglobulins abnormal
  3. LIDOCAINE [Concomitant]
     Active Substance: LIDOCAINE
     Dosage: UNK
  4. SODIUM CHLORIDE [Concomitant]
     Active Substance: SODIUM CHLORIDE
     Dosage: UNK
  5. ACETAMINOPHEN [Concomitant]
     Active Substance: ACETAMINOPHEN
     Dosage: UNK
  6. DIPHENHYDRAMINE [Concomitant]
     Active Substance: DIPHENHYDRAMINE
     Dosage: UNK
  7. EPINEPHRINE [Concomitant]
     Active Substance: EPINEPHRINE
     Dosage: UNK
  8. GAMMAGARD [Concomitant]
     Active Substance: HUMAN IMMUNOGLOBULIN G
     Dosage: UNK
  9. HYDROMORPHONE HCL [Concomitant]
     Active Substance: HYDROMORPHONE HYDROCHLORIDE
  10. ASPIRIN [Concomitant]
     Active Substance: ASPIRIN
  11. ATORVASTATIN CALCIUM [Concomitant]
     Active Substance: ATORVASTATIN CALCIUM
  12. METFORMIN HYDROCHLORIDE [Concomitant]
     Active Substance: METFORMIN HYDROCHLORIDE
     Dosage: UNK
  13. PREDNISONE [Concomitant]
     Active Substance: PREDNISONE
  14. DICLOFENAC POTASSIUM [Concomitant]
     Active Substance: DICLOFENAC POTASSIUM
  15. ALBUTEROL SULFATE [Concomitant]
     Active Substance: ALBUTEROL SULFATE
  16. ATROVENT HFA [Concomitant]
     Active Substance: IPRATROPIUM BROMIDE
  17. VENTOLIN HFA [Concomitant]
     Active Substance: ALBUTEROL SULFATE
  18. LOSARTAN POTASSIUM [Concomitant]
     Active Substance: LOSARTAN POTASSIUM
  19. DULERA [Concomitant]
     Active Substance: FORMOTEROL FUMARATE DIHYDRATE\MOMETASONE FUROATE
  20. ZYRTEC [Concomitant]
     Active Substance: CETIRIZINE HYDROCHLORIDE
  21. FLONASE ALLERGY RELIEF [Concomitant]
     Active Substance: FLUTICASONE PROPIONATE
  22. PREDNISONE [Concomitant]
     Active Substance: PREDNISONE
  23. AMITRIPTYLINE HYDROCHLORIDE [Concomitant]
     Active Substance: AMITRIPTYLINE HYDROCHLORIDE
  24. MONTELUKAST SODIUM [Concomitant]
     Active Substance: MONTELUKAST SODIUM
  25. DULOXETINE HYDROCHLORIDE [Concomitant]
     Active Substance: DULOXETINE HYDROCHLORIDE
  26. ESOMEPRAZOLE MAGNESIUM [Concomitant]
     Active Substance: ESOMEPRAZOLE MAGNESIUM
  27. LYRICA [Concomitant]
     Active Substance: PREGABALIN
  28. METOPROLOL TARTRATE [Concomitant]
     Active Substance: METOPROLOL TARTRATE
  29. SPIRIVA [Concomitant]
     Active Substance: TIOTROPIUM BROMIDE MONOHYDRATE
  30. DILAUDID [Concomitant]
     Active Substance: HYDROMORPHONE HYDROCHLORIDE
  31. OXYGEN [Concomitant]
     Active Substance: OXYGEN
     Dosage: UNK
  32. FLUTICASONE PROPIONATE [Concomitant]
     Active Substance: FLUTICASONE PROPIONATE
     Dosage: UNK
  33. ALBUTEROL SULFATE [Concomitant]
     Active Substance: ALBUTEROL SULFATE
     Dosage: UNK
  34. SERTRALINE HYDROCHLORIDE [Concomitant]
     Active Substance: SERTRALINE HYDROCHLORIDE
     Dosage: UNK
  35. BUPROPION [Concomitant]
     Active Substance: BUPROPION
     Dosage: UNK
  36. AMOXICILLIN [Concomitant]
     Active Substance: AMOXICILLIN
     Dosage: UNK

REACTIONS (3)
  - Cellulitis [Unknown]
  - Respiratory tract infection [Unknown]
  - Product use in unapproved indication [Unknown]
